FAERS Safety Report 25116802 (Version 1)
Quarter: 2025Q1

REPORT INFORMATION
  Report Type: Spontaneous
  Country: MX (occurrence: MX)
  Receive Date: 20250325
  Receipt Date: 20250325
  Transmission Date: 20250409
  Serious: Yes (Other)
  Sender: AMGEN
  Company Number: MX-AMGEN-MEXSP2025056393

PATIENT

DRUGS (1)
  1. XGEVA [Suspect]
     Active Substance: DENOSUMAB
     Indication: Bone giant cell tumour
     Route: 065

REACTIONS (2)
  - Bone giant cell tumour [Unknown]
  - Metastases to lung [Unknown]
